FAERS Safety Report 4527138-2 (Version None)
Quarter: 2004Q4

REPORT INFORMATION
  Report Type: 
  Country: None (occurrence: None)
  Receive Date: 20041110
  Receipt Date: 20021105
  Transmission Date: 20050328
  Serious: Yes (Other)
  Sender: FDA-Public Use
  Company Number: CHPA2002US06499

PATIENT
  Age: 18 Month
  Sex: Female
  Weight: 10 kg

DRUGS (1)
  1. HABITROL [Suspect]
     Indication: ACCIDENTAL EXPOSURE
     Dosage: 1 PATCH, TRANSDERMAL
     Route: 062
     Dates: start: 20021104

REACTIONS (3)
  - HYPERTENSION [None]
  - LETHARGY [None]
  - VOMITING [None]
